FAERS Safety Report 18762318 (Version 1)
Quarter: 2021Q1

REPORT INFORMATION
  Report Type: Spontaneous
  Country: PL (occurrence: PL)
  Receive Date: 20210120
  Receipt Date: 20210120
  Transmission Date: 20210419
  Serious: Yes (Hospitalization, Disabling, Other)
  Sender: FDA-Public Use
  Company Number: PL-MACLEODS PHARMACEUTICALS US LTD-MAC2021029789

PATIENT

DRUGS (2)
  1. LEVOFLOXACIN. [Suspect]
     Active Substance: LEVOFLOXACIN
     Dosage: 500 MILLIGRAM, QD
     Route: 048
     Dates: start: 2015
  2. LEVOFLOXACIN. [Suspect]
     Active Substance: LEVOFLOXACIN
     Indication: PRODUCT USED FOR UNKNOWN INDICATION
     Dosage: 1500 MILLIGRAM, QD
     Route: 048
     Dates: start: 2015

REACTIONS (23)
  - Urinary tract disorder [Recovering/Resolving]
  - Joint injury [Recovering/Resolving]
  - Blood folate increased [Recovering/Resolving]
  - Tendon rupture [Recovering/Resolving]
  - Muscle atrophy [Recovering/Resolving]
  - Anxiety [Recovering/Resolving]
  - Amnesia [Recovering/Resolving]
  - Depression [Recovering/Resolving]
  - Small fibre neuropathy [Recovering/Resolving]
  - Tendon disorder [Recovering/Resolving]
  - Speech disorder [Recovering/Resolving]
  - Confusional state [Recovering/Resolving]
  - Skin disorder [Recovering/Resolving]
  - Demyelination [Recovering/Resolving]
  - Intervertebral disc degeneration [Recovering/Resolving]
  - Food allergy [Recovering/Resolving]
  - Neuropathy peripheral [Recovering/Resolving]
  - Vitamin B12 increased [Recovering/Resolving]
  - Blood homocysteine increased [Recovering/Resolving]
  - Fatigue [Recovering/Resolving]
  - Cerebral congestion [Recovering/Resolving]
  - Headache [Recovering/Resolving]
  - Visual impairment [Recovering/Resolving]

NARRATIVE: CASE EVENT DATE: 2015
